FAERS Safety Report 6425802-1 (Version None)
Quarter: 2009Q4

REPORT INFORMATION
  Report Type: 
  Country: None (occurrence: None)
  Receive Date: 20091103
  Receipt Date: 20090821
  Transmission Date: 20100525
  Serious: No
  Sender: FDA-Public Use
  Company Number: US-ABBOTT-09P-163-0593940-00

PATIENT
  Sex: Female
  Weight: 63.56 kg

DRUGS (2)
  1. BIAXIN [Suspect]
     Indication: BRONCHITIS
     Dates: start: 20090818, end: 20090819
  2. BIAXIN [Suspect]
     Indication: RESPIRATORY TRACT INFECTION

REACTIONS (5)
  - ABDOMINAL DISCOMFORT [None]
  - ABDOMINAL PAIN UPPER [None]
  - DYSPNOEA [None]
  - PALLOR [None]
  - TREMOR [None]
